FAERS Safety Report 9058985 (Version 1)
Quarter: 2013Q1

REPORT INFORMATION
  Report Type: Spontaneous
  Country: US (occurrence: US)
  Receive Date: 20130211
  Receipt Date: 20130211
  Transmission Date: 20140127
  Serious: Yes (Other)
  Sender: FDA-Public Use
  Company Number: US-ASTELLAS-2013US001388

PATIENT
  Age: 40 None
  Sex: Female

DRUGS (1)
  1. PROGRAF [Suspect]
     Indication: LUNG TRANSPLANT
     Dosage: 1.5 MG, BID
     Route: 048
     Dates: start: 19970305

REACTIONS (2)
  - Off label use [Unknown]
  - Renal transplant [Unknown]
